FAERS Safety Report 6148408-0 (Version None)
Quarter: 2009Q2

REPORT INFORMATION
  Report Type: 
  Country: None (occurrence: None)
  Receive Date: 20090408
  Receipt Date: 20090402
  Transmission Date: 20091009
  Serious: No
  Sender: FDA-Public Use
  Company Number: DE-EISAI MEDICAL RESEARCH-E2090-00705-SPO-DE

PATIENT
  Sex: Male
  Weight: 30 kg

DRUGS (6)
  1. ZONEGRAN [Suspect]
     Indication: EPILEPSY
     Route: 048
     Dates: end: 20090310
  2. ZONEGRAN [Suspect]
     Route: 048
     Dates: start: 20090311, end: 20090315
  3. ZONEGRAN [Suspect]
     Route: 048
     Dates: start: 20090316, end: 20090320
  4. ZONEGRAN [Suspect]
     Route: 048
     Dates: start: 20090321, end: 20090327
  5. ZONEGRAN [Suspect]
     Route: 048
     Dates: start: 20090328
  6. LAMOTRIGINE [Concomitant]
     Indication: EPILEPSY
     Route: 048
     Dates: start: 20080101

REACTIONS (1)
  - HYPOTHERMIA [None]
